FAERS Safety Report 6418136-2 (Version None)
Quarter: 2009Q4

REPORT INFORMATION
  Report Type: 
  Country: None (occurrence: None)
  Receive Date: 20091026
  Receipt Date: 20091013
  Transmission Date: 20100525
  Serious: Yes (Other)
  Sender: FDA-Public Use
  Company Number: ADR38242009

PATIENT
  Age: 58 Year
  Sex: Female

DRUGS (3)
  1. SIMVASTATIN [Suspect]
     Indication: HYPERCHOLESTEROLAEMIA
     Dosage: 1 DF DAILY, ORAL USE
     Route: 048
     Dates: start: 20071031, end: 20080430
  2. CODEINE PHOSPHATE [Concomitant]
  3. VENLAFAXINE HCL [Concomitant]

REACTIONS (1)
  - HALLUCINATION, VISUAL [None]
